FAERS Safety Report 10166636 (Version 1)
Quarter: 2014Q2

REPORT INFORMATION
  Report Type: Spontaneous
  Country: US (occurrence: None)
  Receive Date: 20140509
  Receipt Date: 20140509
  Transmission Date: 20141212
  Serious: Yes (Hospitalization)
  Sender: FDA-Public Use
  Company Number: None

PATIENT
  Age: 54 Year
  Sex: Female

DRUGS (7)
  1. FETZIMA [Suspect]
     Indication: DEPRESSION
     Route: 048
  2. LISINOPRIL [Concomitant]
  3. METFORMIN [Concomitant]
  4. CERTRIZINE [Concomitant]
  5. OMEPROZOLE [Concomitant]
  6. SIMVASTATIN [Concomitant]
  7. VICTOZA [Concomitant]

REACTIONS (2)
  - Blood pressure increased [None]
  - Blood pressure inadequately controlled [None]
